FAERS Safety Report 7723312 (Version 3)
Quarter: 2013Q3

REPORT INFORMATION
  Report Type: Report from Study
  Country: US (occurrence: US)
  Receive Date: 20101220
  Receipt Date: 20130730
  Transmission Date: 20140515
  Serious: Yes (Hospitalization, Other)
  Sender: FDA-Public Use
  Company Number: US-ACTELION-A-NJ2010-42479

PATIENT
  Age: 71 Year
  Sex: Female

DRUGS (1)
  1. TRACLEER [Suspect]
     Indication: PULMONARY ARTERIAL HYPERTENSION
     Dosage: UNK
     Route: 048
     Dates: start: 200512

REACTIONS (9)
  - Surgery [Unknown]
  - Spinal cord neoplasm [Recovering/Resolving]
  - Benign tumour excision [Recovering/Resolving]
  - Abasia [Recovering/Resolving]
  - Pelvic fracture [Unknown]
  - Spinal column stenosis [Unknown]
  - Arthritis [Unknown]
  - Sciatica [Unknown]
  - Back disorder [Unknown]
